FAERS Safety Report 4311951-0 (Version None)
Quarter: 2004Q1

REPORT INFORMATION
  Report Type: 
  Country: None (occurrence: None)
  Receive Date: 20040303
  Receipt Date: 20040220
  Transmission Date: 20041129
  Serious: Yes (Hospitalization)
  Sender: FDA-Public Use
  Company Number: FR-JNJFOC-20040204784

PATIENT
  Age: 91 Year
  Sex: Female

DRUGS (4)
  1. RISPERDAL [Suspect]
     Indication: ABNORMAL BEHAVIOUR
     Dosage: 1.5 MG, IN 1 DAY, ORAL; 0.75 MG, IN 1 DAY, ORAL
     Route: 048
     Dates: start: 20030808
  2. TRIMETAZADINE (TRIMETAZADINE) TABLETS [Concomitant]
  3. ARICEPT [Concomitant]
  4. STILNOX (ZOLPIDEM) [Concomitant]

REACTIONS (2)
  - EXTRAPYRAMIDAL DISORDER [None]
  - FALL [None]
